FAERS Safety Report 7478120-7 (Version None)
Quarter: 2011Q2

REPORT INFORMATION
  Report Type: 
  Country: None (occurrence: None)
  Receive Date: 20110511
  Receipt Date: 20110511
  Transmission Date: 20111010
  Serious: Yes (Life-Threatening)
  Sender: FDA-Public Use
  Company Number: None

PATIENT
  Sex: Male
  Weight: 58.2 kg

DRUGS (1)
  1. INTELENCE [Suspect]
     Indication: HIV INFECTION
     Dosage: 1 PILL= 200MG 1 EVERY 12 HOURS MOUTH EVERYDAY
     Route: 048

REACTIONS (4)
  - PRODUCT FORMULATION ISSUE [None]
  - RETCHING [None]
  - OBSTRUCTIVE AIRWAYS DISORDER [None]
  - FOREIGN BODY [None]
